FAERS Safety Report 18730642 (Version 2)
Quarter: 2022Q1

REPORT INFORMATION
  Report Type: Spontaneous
  Country: BE (occurrence: BE)
  Receive Date: 20210112
  Receipt Date: 20220309
  Transmission Date: 20220423
  Serious: Yes (Hospitalization, Other)
  Sender: FDA-Public Use
  Company Number: BE-GILEAD-2020-0511243

PATIENT
  Age: 40 Year
  Sex: Male

DRUGS (2)
  1. ACETAMINOPHEN [Suspect]
     Active Substance: ACETAMINOPHEN
     Indication: Product used for unknown indication
     Dosage: 10 G?ADDITIONAL INFO: OVERDOSE,MISUSE
     Route: 065
  2. GENVOYA [Suspect]
     Active Substance: COBICISTAT\ELVITEGRAVIR\EMTRICITABINE\TENOFOVIR ALAFENAMIDE FUMARATE
     Indication: HIV test positive
     Dosage: 60 TABLETS GENVOYA?ADDITIONAL INFO: OVERDOSE,MISUSE
     Route: 065

REACTIONS (9)
  - Renal impairment [Recovered/Resolved]
  - Poisoning [Unknown]
  - Haemodynamic instability [Recovering/Resolving]
  - Hepatic enzyme increased [Recovering/Resolving]
  - Somnolence [Recovering/Resolving]
  - Loss of consciousness [Unknown]
  - Hypotensive crisis [Unknown]
  - Metabolic acidosis [Unknown]
  - Intentional overdose [Unknown]
